FAERS Safety Report 25839359 (Version 1)
Quarter: 2025Q3

REPORT INFORMATION
  Report Type: Spontaneous
  Country: US (occurrence: US)
  Receive Date: 20250924
  Receipt Date: 20250924
  Transmission Date: 20251020
  Serious: Yes (Other)
  Sender: BRISTOL-MYERS SQUIBB COMPANY
  Company Number: US-BRISTOL-MYERS SQUIBB COMPANY-2025-130506

PATIENT
  Age: 32 Year
  Sex: Male

DRUGS (2)
  1. SPRYCEL [Suspect]
     Active Substance: DASATINIB
     Indication: Product used for unknown indication
  2. SPRYCEL [Suspect]
     Active Substance: DASATINIB
     Dosage: TAKE 1 TABLET BY MOUTH ONCE DAILY WITH OR WITHOUT FOOD
     Dates: start: 20250922

REACTIONS (2)
  - Pericardial effusion [Unknown]
  - Diarrhoea [Unknown]

NARRATIVE: CASE EVENT DATE: 20250922
